FAERS Safety Report 10304918 (Version 1)
Quarter: 2014Q3

REPORT INFORMATION
  Report Type: Spontaneous
  Country: US (occurrence: None)
  Receive Date: 20140710
  Receipt Date: 20140710
  Transmission Date: 20150326
  Serious: Yes (Disabling)
  Sender: FDA-Public Use
  Company Number: None

PATIENT
  Age: 72 Year
  Sex: Female
  Weight: 72.58 kg

DRUGS (1)
  1. SIMVASTATIN. [Suspect]
     Active Substance: SIMVASTATIN
     Indication: BLOOD CHOLESTEROL INCREASED
     Dosage: ONCE DAILY
     Dates: start: 20040808, end: 20140706

REACTIONS (7)
  - Myalgia [None]
  - Diabetes mellitus [None]
  - Asthenia [None]
  - Muscle atrophy [None]
  - Musculoskeletal pain [None]
  - Fatigue [None]
  - Arthritis [None]

NARRATIVE: CASE EVENT DATE: 20040808
